FAERS Safety Report 8507304-1 (Version None)
Quarter: 2012Q3

REPORT INFORMATION
  Report Type: 
  Country: None (occurrence: None)
  Receive Date: 20120712
  Receipt Date: 20120704
  Transmission Date: 20120928
  Serious: Yes (Hospitalization)
  Sender: FDA-Public Use
  Company Number: JP-ROCHE-676409

PATIENT
  Sex: Male
  Weight: 22 kg

DRUGS (73)
  1. ACTEMRA [Suspect]
     Route: 041
     Dates: start: 20081106, end: 20081106
  2. ACTEMRA [Suspect]
     Route: 041
     Dates: start: 20081212, end: 20090107
  3. ACTEMRA [Suspect]
     Route: 041
     Dates: start: 20091105, end: 20091105
  4. PREDNISOLONE [Concomitant]
     Route: 048
     Dates: start: 20080416, end: 20080425
  5. PREDNISOLONE [Concomitant]
     Route: 048
     Dates: start: 20080911, end: 20080924
  6. PREDNISOLONE [Concomitant]
     Route: 048
     Dates: start: 20080925, end: 20081008
  7. PREDNISOLONE [Concomitant]
     Route: 048
     Dates: start: 20090305, end: 20090422
  8. PREDNISOLONE [Concomitant]
     Dosage: INFUSION RATE DECREASED
     Route: 048
  9. SUCRALFATE [Concomitant]
     Route: 048
     Dates: start: 20080723, end: 20090421
  10. XALATAN [Concomitant]
     Indication: GLAUCOMA
     Dosage: DROPS: DROPS (INTRAOCULAR), NOTE: DOSAGE ADJUSTED
     Route: 047
  11. CEFDINIR [Concomitant]
     Dosage: DOSE FORM: FINE GRANULE
     Route: 048
     Dates: start: 20080516, end: 20080523
  12. EPINASTINE HYDROCHLORIDE [Concomitant]
     Indication: PRURITUS
     Dosage: DRUG REPORTED AS ALESION(EPINASTINE HYDROCHLORIDE)
     Route: 048
     Dates: start: 20090724, end: 20091201
  13. SOLU-MEDROL [Concomitant]
     Indication: JUVENILE ARTHRITIS
     Dosage: ROUTE: INTRAVENOUS DRIP, FORM:INJECTABLE.
     Route: 042
     Dates: start: 20100108, end: 20100110
  14. ACTEMRA [Suspect]
     Route: 041
     Dates: start: 20081008, end: 20081022
  15. ACTEMRA [Suspect]
     Route: 041
     Dates: start: 20091202, end: 20091202
  16. PREDNISOLONE [Concomitant]
     Route: 048
     Dates: start: 20080828, end: 20080910
  17. PREDNISOLONE [Concomitant]
     Route: 048
     Dates: start: 20081224, end: 20090107
  18. PREDNISOLONE [Concomitant]
     Route: 048
     Dates: start: 20090423, end: 20090101
  19. PREDNISOLONE [Concomitant]
     Route: 048
     Dates: start: 20091204, end: 20100107
  20. ALFAROL [Concomitant]
     Dosage: DRUG: ALFAROL POWDER(ALFACALCIDOL)
     Route: 048
  21. WHITE PETROLATUM [Concomitant]
     Indication: PROPHYLAXIS
     Dosage: NOTE: DOSAGE ADJUSTED, DRUG: UNKNOWNDRUG(WHITE PETROLATUM)
     Route: 061
  22. ACTEMRA [Suspect]
     Route: 041
     Dates: start: 20090406, end: 20090507
  23. PREDNISOLONE [Concomitant]
     Indication: JUVENILE ARTHRITIS
     Dosage: DRUG: UNKNOWNDRUG(PREDNISOLONE)
     Route: 048
  24. PREDNISOLONE [Concomitant]
     Route: 048
     Dates: start: 20090205, end: 20090304
  25. HYALEIN [Concomitant]
     Indication: PROPHYLAXIS
     Dosage: DROPS: DROPS (INTRAOCULAR), NOTE: DOSAGE ADJUSTED
     Route: 047
  26. AZOPT [Concomitant]
     Indication: GLAUCOMA
     Dosage: DOSE FORM: DROPS (INTRAOCULAR), NOTE: DOSAGE ADJUSTED
     Route: 047
  27. INFLUENZA HA VACCINE [Concomitant]
     Route: 058
     Dates: start: 20091105, end: 20091105
  28. MUCOSTA [Concomitant]
     Indication: PROPHYLAXIS
     Route: 048
     Dates: start: 20111008
  29. ACTEMRA [Suspect]
     Indication: JUVENILE ARTHRITIS
     Route: 041
     Dates: start: 20080611, end: 20080723
  30. ACTEMRA [Suspect]
     Route: 041
     Dates: start: 20080806, end: 20080815
  31. PREDNISOLONE [Concomitant]
     Route: 048
     Dates: start: 20080612, end: 20080625
  32. PREDNISOLONE [Concomitant]
     Route: 048
     Dates: start: 20081009, end: 20081022
  33. SUCRALFATE [Concomitant]
     Route: 048
     Dates: start: 20080710, end: 20080722
  34. FELBINAC [Concomitant]
     Indication: JUVENILE ARTHRITIS
     Dosage: DOSE FORM: TAPE, NOTE: TAKEN AS NEEDED TO DOSAGE ADJUSTED, REPORTED AS SELTOUCH(FELBINAC)
     Route: 061
  35. SOLU-MEDROL [Concomitant]
     Dosage: ROUTE: INTRAVENOUS DRIP, FORM:INJECTABLE.
     Route: 042
     Dates: start: 20100115, end: 20100117
  36. ACTEMRA [Suspect]
     Route: 041
     Dates: start: 20081119, end: 20081203
  37. ACTEMRA [Suspect]
     Route: 041
     Dates: start: 20091221, end: 20100104
  38. ACTEMRA [Suspect]
     Route: 041
     Dates: start: 20110617, end: 20111021
  39. ACTEMRA [Suspect]
     Route: 041
  40. PREDNISOLONE [Concomitant]
     Route: 048
     Dates: start: 20080508, end: 20080516
  41. TIMOPTOL-XE [Concomitant]
     Indication: GLAUCOMA
     Dosage: DRUG: TIMOPTOL-XE(TIMOLOL MALEATE), NOTE: DOSAGE ADJUSTED, DOSE FORM: DROPS (INTRAOCULAR)
     Route: 047
  42. HIRUDOID [Concomitant]
     Indication: PROPHYLAXIS
     Dosage: DRUG: HIRUDOID(HEPARINOID), NOTE: DOSAGE ADJUSTED
     Route: 061
  43. IBRUPROFEN [Concomitant]
     Indication: JUVENILE ARTHRITIS
     Route: 048
     Dates: start: 20091222, end: 20100108
  44. ACTEMRA [Suspect]
     Route: 041
     Dates: start: 20090121, end: 20090318
  45. ACTEMRA [Suspect]
     Route: 041
     Dates: start: 20090521, end: 20090101
  46. ACTEMRA [Suspect]
     Route: 041
  47. PREDNISOLONE [Concomitant]
     Route: 048
     Dates: start: 20080626, end: 20080709
  48. PREDNISOLONE [Concomitant]
     Route: 048
     Dates: start: 20080710, end: 20080724
  49. PREDNISOLONE [Concomitant]
     Route: 048
     Dates: start: 20080725, end: 20080807
  50. PREDNISOLONE [Concomitant]
     Route: 048
     Dates: start: 20090911, end: 20091203
  51. SUCRALFATE [Concomitant]
     Indication: PROPHYLAXIS
     Dosage: DRUG: ULCERLMIN(SUCRALFATE) DOSE FORM: FINE GRANULE
     Route: 048
  52. SUCRALFATE [Concomitant]
     Route: 048
     Dates: start: 20080405, end: 20080709
  53. ACTEMRA [Suspect]
     Route: 041
     Dates: start: 20080827, end: 20080924
  54. ACTEMRA [Suspect]
     Route: 041
     Dates: start: 20111109, end: 20120418
  55. PREDNISOLONE [Concomitant]
     Route: 048
     Dates: start: 20080426, end: 20080507
  56. PREDNISOLONE [Concomitant]
     Route: 048
     Dates: start: 20080529, end: 20080611
  57. PREDNISOLONE [Concomitant]
     Route: 048
     Dates: start: 20080808, end: 20080815
  58. PREDNISOLONE [Concomitant]
     Route: 048
     Dates: start: 20080816, end: 20080827
  59. PREDNISOLONE [Concomitant]
     Route: 048
     Dates: start: 20081107, end: 20081203
  60. ALFAROL [Concomitant]
     Indication: PROPHYLAXIS
     Dosage: DRUG: ALFAROL POWDER(ALFACALCIDOL)
     Route: 048
  61. GENTAMICIN SULFATE [Concomitant]
     Dosage: DRUG: GENTACIN(GENTAMICIN SULFATE), DOSAGE ADJUSTED
     Route: 061
     Dates: start: 20080413, end: 20081203
  62. ENALAPRIL MALEATE [Concomitant]
     Indication: HYPERTENSION
     Dosage: DRUG: RENIVACE(ENALAPRIL MALEATE)
     Route: 048
     Dates: start: 20080417, end: 20090131
  63. CEFDINIR [Concomitant]
     Route: 048
     Dates: start: 20080723, end: 20080730
  64. ACTEMRA [Suspect]
     Route: 041
     Dates: start: 20100414, end: 20100805
  65. ACTEMRA [Suspect]
     Route: 041
     Dates: start: 20100820, end: 20110602
  66. PREDNISOLONE [Concomitant]
     Route: 048
     Dates: start: 20080329, end: 20080415
  67. PREDNISOLONE [Concomitant]
     Route: 048
     Dates: start: 20080517, end: 20080528
  68. PREDNISOLONE [Concomitant]
     Route: 048
     Dates: start: 20081023, end: 20081106
  69. PREDNISOLONE [Concomitant]
     Route: 048
     Dates: start: 20090108, end: 20090204
  70. PREDNISOLONE [Concomitant]
     Route: 048
  71. SUCRALFATE [Concomitant]
     Route: 048
  72. CEFDINIR [Concomitant]
     Route: 048
     Dates: start: 20090310, end: 20090312
  73. RESTAMIN [Concomitant]
     Indication: PROPHYLAXIS
     Dosage: DRUG: DOSAGE ADJUSTED
     Route: 061

REACTIONS (8)
  - UPPER RESPIRATORY TRACT INFLAMMATION [None]
  - HISTIOCYTOSIS HAEMATOPHAGIC [None]
  - STOMATITIS [None]
  - INFLUENZA [None]
  - TOOTH INFECTION [None]
  - LYMPHADENITIS [None]
  - JUVENILE ARTHRITIS [None]
  - WHITE BLOOD CELL COUNT DECREASED [None]
